FAERS Safety Report 6095455-3 (Version None)
Quarter: 2009Q1

REPORT INFORMATION
  Report Type: 
  Country: None (occurrence: None)
  Receive Date: 20090227
  Receipt Date: 20080404
  Transmission Date: 20090719
  Serious: No
  Sender: FDA-Public Use
  Company Number: A0719375A

PATIENT
  Age: 39 Year
  Sex: Female

DRUGS (8)
  1. LAMICTAL [Suspect]
     Indication: BIPOLAR DISORDER
     Dosage: 25MG PER DAY
     Route: 048
  2. SYNTHROID [Concomitant]
  3. COREG [Concomitant]
  4. ZOCOR [Concomitant]
  5. IRON [Concomitant]
  6. FLEXERIL [Concomitant]
  7. ASPIRIN [Concomitant]
  8. LISINOPRIL [Concomitant]

REACTIONS (1)
  - DEPRESSION [None]
